FAERS Safety Report 24241661 (Version 1)
Quarter: 2024Q3

REPORT INFORMATION
  Report Type: Spontaneous
  Country: US (occurrence: US)
  Receive Date: 20240823
  Receipt Date: 20240823
  Transmission Date: 20241016
  Serious: Yes (Other)
  Sender: BLUEPRINT MEDICINES
  Company Number: US-Blueprint Medicines Corporation-4520

PATIENT
  Sex: Female

DRUGS (1)
  1. AYVAKIT [Suspect]
     Active Substance: AVAPRITINIB
     Indication: Haematopoietic neoplasm
     Route: 065
     Dates: start: 20231203

REACTIONS (5)
  - Mast cell activation syndrome [Recovered/Resolved]
  - Condition aggravated [Recovered/Resolved]
  - Skin lesion inflammation [Unknown]
  - Paraesthesia [Unknown]
  - Stress [Unknown]
